FAERS Safety Report 9579964 (Version 1)
Quarter: 2013Q3

REPORT INFORMATION
  Report Type: Spontaneous
  Country: MX (occurrence: None)
  Receive Date: 20130930
  Receipt Date: 20130930
  Transmission Date: 20140515
  Serious: Yes (Disabling)
  Sender: FDA-Public Use
  Company Number: None

PATIENT
  Age: 68 Year
  Sex: Male
  Weight: 72.58 kg

DRUGS (1)
  1. LIPITOR [Suspect]
     Dosage: 1 PILL; ONCE DAILY
     Route: 048

REACTIONS (4)
  - Muscle disorder [None]
  - Muscle atrophy [None]
  - Chromaturia [None]
  - Blood creatine increased [None]
